FAERS Safety Report 15444275 (Version 1)
Quarter: 2018Q3

REPORT INFORMATION
  Report Type: Report from Study
  Country: FR (occurrence: FR)
  Receive Date: 20180928
  Receipt Date: 20180928
  Transmission Date: 20181010
  Serious: Yes (Other)
  Sender: FDA-Public Use
  Company Number: FR-PFIZER INC-2018385972

PATIENT
  Age: 65 Year
  Sex: Male
  Weight: 91 kg

DRUGS (8)
  1. METHOTREXATE SODIUM. [Interacting]
     Active Substance: METHOTREXATE SODIUM
     Dosage: 25 MG, WEEKLY
     Route: 048
     Dates: start: 20170919, end: 20180108
  2. HUMIRA [Interacting]
     Active Substance: ADALIMUMAB
     Indication: PSORIASIS
     Dosage: 80 MG, WEEKLY
     Route: 058
     Dates: start: 20180129, end: 20180205
  3. AMLOR [Concomitant]
     Active Substance: AMLODIPINE BESYLATE
  4. METHOTREXATE SODIUM. [Suspect]
     Active Substance: METHOTREXATE SODIUM
     Indication: PSORIASIS
     Dosage: 20 MG, WEEKLY
     Route: 048
     Dates: start: 20170523, end: 20170919
  5. HUMIRA [Interacting]
     Active Substance: ADALIMUMAB
     Dosage: 40 MG, UNK
     Route: 058
     Dates: start: 20180205, end: 20180719
  6. CRESTOR [Concomitant]
     Active Substance: ROSUVASTATIN CALCIUM
  7. GLIBENCLAMIDE [Concomitant]
     Active Substance: GLYBURIDE
  8. METFORMIN [Concomitant]
     Active Substance: METFORMIN HYDROCHLORIDE

REACTIONS (3)
  - Drug ineffective [Not Recovered/Not Resolved]
  - Inhibitory drug interaction [Not Recovered/Not Resolved]
  - Drug specific antibody present [Not Recovered/Not Resolved]

NARRATIVE: CASE EVENT DATE: 2018
